FAERS Safety Report 6386028-3 (Version None)
Quarter: 2009Q4

REPORT INFORMATION
  Report Type: 
  Country: None (occurrence: None)
  Receive Date: 20091002
  Receipt Date: 20081027
  Transmission Date: 20100525
  Serious: No
  Sender: FDA-Public Use
  Company Number: US-ASTRAZENECA-2008UW24023

PATIENT
  Age: 55 Year
  Sex: Female

DRUGS (2)
  1. ARIMIDEX [Suspect]
     Route: 048
     Dates: start: 20081008
  2. XANAX [Concomitant]
     Route: 048

REACTIONS (4)
  - DIARRHOEA [None]
  - FEELING JITTERY [None]
  - NERVOUSNESS [None]
  - PRODUCTIVE COUGH [None]
